FAERS Safety Report 9973726 (Version 1)
Quarter: 2014Q1

REPORT INFORMATION
  Report Type: Spontaneous
  Country: FI (occurrence: FI)
  Receive Date: 20140306
  Receipt Date: 20140306
  Transmission Date: 20141002
  Serious: Yes (Death, Other)
  Sender: FDA-Public Use
  Company Number: FI-TEVA-466244ISR

PATIENT
  Age: 77 Year
  Sex: Female

DRUGS (6)
  1. OXAZEPAM [Suspect]
     Dosage: SUBSTANTIAL DOSE
     Route: 065
  2. DIAZEPAM [Suspect]
     Route: 065
  3. CHLORDIAZEPOXIDE [Suspect]
     Dosage: SUBSTANTIAL DOSE
     Route: 065
  4. PARACETAMOL [Concomitant]
     Route: 065
  5. CARBAMAZEPINE [Concomitant]
     Route: 065
  6. MORPHINE [Concomitant]
     Route: 065

REACTIONS (5)
  - Poisoning deliberate [Fatal]
  - Poisoning [Fatal]
  - Loss of consciousness [Recovered/Resolved]
  - Respiratory depression [Recovered/Resolved]
  - Convulsion [Unknown]
